FAERS Safety Report 23074019 (Version 3)
Quarter: 2024Q1

REPORT INFORMATION
  Report Type: Spontaneous
  Country: PL (occurrence: PL)
  Receive Date: 20231017
  Receipt Date: 20240228
  Transmission Date: 20240410
  Serious: Yes (Other)
  Sender: FDA-Public Use
  Company Number: PL-CELLTRION INC.-2023PL019687

PATIENT

DRUGS (16)
  1. RITUXIMAB [Suspect]
     Active Substance: RITUXIMAB
     Indication: Parkinson^s disease
     Dosage: UNK
     Route: 065
     Dates: start: 20210409, end: 20210913
  2. RITUXIMAB [Suspect]
     Active Substance: RITUXIMAB
     Indication: COVID-19
     Dosage: UNK
     Route: 065
     Dates: start: 20220620, end: 20220711
  3. VINCRISTINE [Suspect]
     Active Substance: VINCRISTINE
     Indication: Parkinson^s disease
     Dosage: UNK
     Route: 065
     Dates: start: 20210409, end: 20210913
  4. FLUDARABINE PHOSPHATE [Suspect]
     Active Substance: FLUDARABINE PHOSPHATE
     Indication: Parkinson^s disease
     Dosage: 25MG/M2 FOR 3 DAYS
     Route: 065
  5. CYCLOPHOSPHAMIDE [Suspect]
     Active Substance: CYCLOPHOSPHAMIDE
     Indication: Parkinson^s disease
     Dosage: UNK
     Route: 065
     Dates: start: 20210409, end: 20210913
  6. CISPLATIN [Suspect]
     Active Substance: CISPLATIN
     Indication: Parkinson^s disease
     Dosage: UNK
     Route: 065
  7. PREDNISONE [Suspect]
     Active Substance: PREDNISONE
     Indication: Parkinson^s disease
     Dosage: UNK
     Route: 065
     Dates: start: 20210409, end: 20210913
  8. DOXORUBICIN [Suspect]
     Active Substance: DOXORUBICIN
     Indication: Parkinson^s disease
     Dosage: UNK
     Route: 065
     Dates: start: 20210409, end: 20210913
  9. KYMRIAH [Suspect]
     Active Substance: TISAGENLECLEUCEL
     Indication: Parkinson^s disease
     Dosage: UNK
     Route: 065
  10. CYTARABINE [Suspect]
     Active Substance: CYTARABINE
     Indication: Parkinson^s disease
     Dosage: UNK
     Route: 065
  11. ETOPOSIDE [Suspect]
     Active Substance: ETOPOSIDE
     Indication: Parkinson^s disease
     Dosage: UNK
     Route: 065
     Dates: start: 20210409, end: 20210913
  12. DEXAMETHASONE [Suspect]
     Active Substance: DEXAMETHASONE
     Indication: Parkinson^s disease
     Dosage: 10 MG I.V. , EVERY 6 HOURS
     Route: 065
  13. BENDAMUSTINE [Suspect]
     Active Substance: BENDAMUSTINE
     Indication: Parkinson^s disease
     Dosage: UNK
     Route: 065
     Dates: start: 20220105, end: 20220321
  14. BENDAMUSTINE [Suspect]
     Active Substance: BENDAMUSTINE
     Indication: COVID-19
  15. LENALIDOMIDE [Suspect]
     Active Substance: LENALIDOMIDE
     Indication: Product used for unknown indication
     Dosage: UNK
     Route: 065
  16. TAFASITAMAB [Suspect]
     Active Substance: TAFASITAMAB
     Indication: COVID-19
     Route: 065

REACTIONS (5)
  - Immune effector cell-associated neurotoxicity syndrome [Recovering/Resolving]
  - Agranulocytosis [Unknown]
  - Thrombocytopenia [Unknown]
  - Infection [Unknown]
  - Intentional product use issue [Unknown]
